FAERS Safety Report 6097548-3 (Version None)
Quarter: 2009Q1

REPORT INFORMATION
  Report Type: 
  Country: None (occurrence: None)
  Receive Date: 20090227
  Receipt Date: 20081014
  Transmission Date: 20090719
  Serious: No
  Sender: FDA-Public Use
  Company Number: A0752843A

PATIENT
  Sex: Female

DRUGS (2)
  1. IMITREX [Suspect]
     Indication: MIGRAINE
     Route: 065
  2. TREXIMET [Suspect]
     Indication: MIGRAINE
     Route: 048

REACTIONS (3)
  - DRUG INEFFECTIVE [None]
  - NAUSEA [None]
  - VOMITING [None]
